FAERS Safety Report 18001353 (Version 1)
Quarter: 2020Q3

REPORT INFORMATION
  Report Type: Spontaneous
  Country: DE (occurrence: DE)
  Receive Date: 20200709
  Receipt Date: 20200709
  Transmission Date: 20201103
  Serious: Yes (Hospitalization)
  Sender: FDA-Public Use
  Company Number: DE-MYLANLABS-2020M1062007

PATIENT
  Age: 16 Year
  Sex: Female

DRUGS (2)
  1. BETAMETHASONE. [Suspect]
     Active Substance: BETAMETHASONE
     Indication: DERMATITIS ATOPIC
     Dosage: FORMULATION: LOTION
     Route: 065
  2. PREDNISOLONE. [Suspect]
     Active Substance: PREDNISOLONE
     Indication: DERMATITIS ATOPIC
     Dosage: UNK
     Route: 048

REACTIONS (5)
  - Hyper IgE syndrome [Recovering/Resolving]
  - Bacterial infection [Recovering/Resolving]
  - Gene mutation [Recovering/Resolving]
  - Superinfection bacterial [Recovering/Resolving]
  - Condition aggravated [Recovering/Resolving]
